FAERS Safety Report 8061724-0 (Version None)
Quarter: 2012Q1

REPORT INFORMATION
  Report Type: 
  Country: None (occurrence: None)
  Receive Date: 20120123
  Receipt Date: 20120113
  Transmission Date: 20120608
  Serious: Yes (Hospitalization)
  Sender: FDA-Public Use
  Company Number: US-BIOGENIDEC-2011BI046165

PATIENT
  Age: 59 Year
  Sex: Male

DRUGS (3)
  1. AVONEX [Suspect]
     Route: 030
     Dates: start: 20090211
  2. FLU SHOT [Concomitant]
     Route: 030
     Dates: start: 20110922, end: 20110922
  3. AVONEX [Suspect]
     Indication: MULTIPLE SCLEROSIS
     Route: 030

REACTIONS (5)
  - VACCINATION COMPLICATION [None]
  - VACCINATION SITE CELLULITIS [None]
  - WHITE BLOOD CELL COUNT INCREASED [None]
  - HEMIPARESIS [None]
  - MULTIPLE SCLEROSIS RELAPSE [None]
